FAERS Safety Report 8061203-0 (Version None)
Quarter: 2012Q1

REPORT INFORMATION
  Report Type: 
  Country: None (occurrence: None)
  Receive Date: 20120120
  Receipt Date: 20110908
  Transmission Date: 20120608
  Serious: No
  Sender: FDA-Public Use
  Company Number: US-ALLERGAN-1106619US

PATIENT
  Age: 86 Year
  Sex: Male

DRUGS (2)
  1. RESTASIS [Suspect]
     Indication: DRY EYE
     Dosage: 1 GTT, BID
     Route: 047
     Dates: start: 20110505
  2. AZASITE [Concomitant]
     Indication: FOREIGN BODY IN EYE
     Dosage: UNK

REACTIONS (1)
  - VISUAL ACUITY REDUCED [None]
